FAERS Safety Report 20997961 (Version 1)
Quarter: 2022Q2

REPORT INFORMATION
  Report Type: Spontaneous
  Country: US (occurrence: US)
  Receive Date: 20220623
  Receipt Date: 20220623
  Transmission Date: 20220721
  Serious: No
  Sender: FDA-Public Use
  Company Number: US-IDORSIA-000556-2022-US

PATIENT
  Age: 51 Year
  Sex: Female

DRUGS (8)
  1. QUVIVIQ [Suspect]
     Active Substance: DARIDOREXANT
     Indication: Insomnia
     Dosage: 25 MG, QD
     Route: 048
     Dates: start: 20220615
  2. GLUCOSAMINE [Concomitant]
     Active Substance: GLUCOSAMINE
  3. CHONDROITIN [Concomitant]
     Active Substance: CHONDROITIN
  4. DIMETHYL SULFONE [Concomitant]
     Active Substance: DIMETHYL SULFONE
  5. XANAX [Concomitant]
     Active Substance: ALPRAZOLAM
  6. PRAZOLAM [Concomitant]
     Dosage: 0.25 UNK
  7. GABAPENTIN [Concomitant]
     Active Substance: GABAPENTIN
     Dosage: 100 MG
  8. SINGULAIR [Concomitant]
     Active Substance: MONTELUKAST SODIUM

REACTIONS (3)
  - Feeling abnormal [Not Recovered/Not Resolved]
  - Sleep paralysis [Not Recovered/Not Resolved]
  - Drug ineffective [Not Recovered/Not Resolved]

NARRATIVE: CASE EVENT DATE: 20220615
